FAERS Safety Report 16239246 (Version 1)
Quarter: 2019Q2

REPORT INFORMATION
  Report Type: Spontaneous
  Country: CN (occurrence: CN)
  Receive Date: 20190425
  Receipt Date: 20190425
  Transmission Date: 20190711
  Serious: Yes (Other)
  Sender: FDA-Public Use
  Company Number: CN-PFIZER INC-2019171377

PATIENT
  Age: 49 Year
  Sex: Male

DRUGS (3)
  1. FUDOSTEINE [Concomitant]
     Active Substance: FUDOSTEINE
     Indication: PRODUCTIVE COUGH
     Dosage: 0.4 G, 3X/DAY
     Route: 048
     Dates: start: 20190418, end: 20190418
  2. METHYLPREDNISOLONE SODIUM SUCCINATE. [Suspect]
     Active Substance: METHYLPREDNISOLONE SODIUM SUCCINATE
     Indication: LUNG INFECTION
     Dosage: 40 MG, 2X/DAY
     Route: 041
     Dates: start: 20190418, end: 20190418
  3. SHIOMARIN [Concomitant]
     Active Substance: LATAMOXEF DISODIUM
     Indication: ANTI-INFECTIVE THERAPY
     Dosage: 1 G, 2X/DAY
     Route: 041
     Dates: start: 20190418, end: 20190418

REACTIONS (4)
  - Head discomfort [Recovering/Resolving]
  - Dizziness [Recovering/Resolving]
  - Flushing [Recovering/Resolving]
  - Rash pruritic [Recovering/Resolving]

NARRATIVE: CASE EVENT DATE: 20190418
